FAERS Safety Report 23996924 (Version 3)
Quarter: 2024Q3

REPORT INFORMATION
  Report Type: Spontaneous
  Country: JP (occurrence: JP)
  Receive Date: 20240620
  Receipt Date: 20240908
  Transmission Date: 20241017
  Serious: Yes (Death)
  Sender: JOHNSON AND JOHNSON
  Company Number: JP-JNJFOC-20240652375

PATIENT
  Age: 7 Decade
  Sex: Male

DRUGS (8)
  1. PREZCOBIX [Suspect]
     Active Substance: COBICISTAT\DARUNAVIR ETHANOLATE
     Indication: HIV infection
     Route: 048
     Dates: start: 20230509, end: 20230528
  2. PIFELTRO [Concomitant]
     Active Substance: DORAVIRINE
     Indication: HIV infection
     Route: 048
     Dates: start: 20230509, end: 20230528
  3. PREDNISOLONE [Concomitant]
     Active Substance: PREDNISOLONE
     Indication: Toxic epidermal necrolysis
     Dosage: DOSE UNKNOWN
     Route: 065
     Dates: start: 20230512, end: 20230528
  4. BETAMETHASONE [Concomitant]
     Active Substance: BETAMETHASONE
     Indication: Toxic epidermal necrolysis
     Dosage: DOSE UNKNOWN
     Route: 065
     Dates: start: 20230505, end: 20230511
  5. IMMUNE GLOBULIN NOS [Concomitant]
     Active Substance: IMMUNE GLOBULIN NOS
     Indication: Toxic epidermal necrolysis
     Dosage: DOSE UNKNOWN
     Route: 065
     Dates: start: 20230508, end: 20230514
  6. FLUCONAZOLE [Concomitant]
     Active Substance: FLUCONAZOLE
     Dosage: DOSE UNKNOWN
     Route: 065
     Dates: start: 20230428, end: 20230505
  7. FAMOTIDINE [Concomitant]
     Active Substance: FAMOTIDINE
     Indication: Prophylaxis
     Dosage: DOSE UNKNOWN
     Route: 065
     Dates: start: 20230516, end: 20230528
  8. SULFAMETHOXAZOLE\TRIMETHOPRIM [Concomitant]
     Active Substance: SULFAMETHOXAZOLE\TRIMETHOPRIM
     Indication: Prophylaxis
     Dosage: DOSE UNKNOWN
     Route: 065
     Dates: start: 20230421, end: 20230528

REACTIONS (2)
  - Cardiac failure [Fatal]
  - Pulmonary hypertension [Fatal]
